FAERS Safety Report 24993220 (Version 2)
Quarter: 2025Q1

REPORT INFORMATION
  Report Type: Spontaneous
  Country: DE (occurrence: DE)
  Receive Date: 20250221
  Receipt Date: 20250306
  Transmission Date: 20250409
  Serious: Yes (Other)
  Sender: AUROBINDO
  Company Number: DE-BRISTOL-MYERS SQUIBB COMPANY-2024-178709

PATIENT
  Age: 43 Year
  Sex: Female
  Weight: 110 kg

DRUGS (13)
  1. OXALIPLATIN [Suspect]
     Active Substance: OXALIPLATIN
     Indication: Gastric cancer
     Route: 042
     Dates: start: 20240814, end: 20250102
  2. OPDIVO [Suspect]
     Active Substance: NIVOLUMAB
     Indication: Gastric cancer
     Route: 042
     Dates: start: 20240814
  3. FLUOROURACIL [Suspect]
     Active Substance: FLUOROURACIL
     Indication: Gastric cancer
     Route: 042
     Dates: start: 20240814
  4. ESOMEPRAZOLE [Concomitant]
     Active Substance: ESOMEPRAZOLE
     Indication: Prophylaxis
     Dosage: 20 MILLIGRAM, TWO TIMES A DAY
     Route: 048
     Dates: start: 20240717
  5. METAMIZOLE [Concomitant]
     Active Substance: METAMIZOLE
     Indication: Product used for unknown indication
     Route: 048
     Dates: start: 20240829
  6. DEXAMETHASONE [Concomitant]
     Active Substance: DEXAMETHASONE
     Indication: Prophylaxis
     Dosage: 8 MILLIGRAM, ONCE A DAY, DEXAMETHASONE TO EACH CHEMO CYCLE FOR THE INDICATION OF PROPHYLAXIS DOSE- 8
     Route: 048
     Dates: start: 20240816
  7. GRANISETRON [Concomitant]
     Active Substance: GRANISETRON
     Indication: Prophylaxis
     Dosage: 1 MILLIGRAM, ONCE A DAY,GRANISETRON AS NEEDED DOSE-3 MG ROA-INTRAVENOUS (NOT OTHERWISE START DATE-15
     Route: 042
     Dates: start: 20240814
  8. FOLIC ACID [Concomitant]
     Active Substance: FOLIC ACID
     Indication: Prophylaxis
     Dosage: 890 MILLIGRAM, ONCE A DAY
     Route: 042
     Dates: start: 20240814
  9. DIMENHYDRINATE [Concomitant]
     Active Substance: DIMENHYDRINATE
     Indication: Prophylaxis
     Route: 042
     Dates: start: 20240815
  10. ACETAMINOPHEN [Concomitant]
     Active Substance: ACETAMINOPHEN
     Indication: Prophylaxis
     Route: 048
     Dates: start: 20240815
  11. ENOXAPARIN [Concomitant]
     Active Substance: ENOXAPARIN
     Indication: Prophylaxis
     Dosage: 0.3 MILLILITER, ONCE A DAY, DOSE-0.4 ML ROI-SUBCUTANEOUSSTART DATE-11-SEP-2024
     Route: 058
     Dates: start: 20240828
  12. POTASSIUM CHLORIDE [Concomitant]
     Active Substance: POTASSIUM CHLORIDE
     Indication: Product used for unknown indication
     Route: 048
     Dates: start: 20240828
  13. PEGFILGRASTIM [Concomitant]
     Active Substance: PEGFILGRASTIM
     Indication: Adverse event
     Route: 058
     Dates: start: 20241002, end: 20241002

REACTIONS (3)
  - Polyneuropathy [Not Recovered/Not Resolved]
  - Immune-mediated hypothyroidism [Recovering/Resolving]
  - Cold dysaesthesia [Recovered/Resolved]

NARRATIVE: CASE EVENT DATE: 20241106
